FAERS Safety Report 9891264 (Version 1)
Quarter: 2014Q1

REPORT INFORMATION
  Report Type: Spontaneous
  Country: GB (occurrence: None)
  Receive Date: 20140210
  Receipt Date: 20140210
  Transmission Date: 20141002
  Serious: Yes (Other)
  Sender: FDA-Public Use
  Company Number: GB-DEXPHARM-20140028

PATIENT
  Age: 40 Year
  Sex: Female
  Weight: 60 kg

DRUGS (10)
  1. NAPROXEN [Suspect]
     Indication: BACK PAIN
     Route: 048
     Dates: start: 20131201, end: 20140101
  2. OMEPRAZOLE [Suspect]
     Indication: BACK PAIN
     Route: 048
     Dates: start: 20131201, end: 20140101
  3. ZAPAIN [Suspect]
  4. TRAMADOL [Suspect]
  5. CODEINE [Concomitant]
  6. GABAPENTIN [Concomitant]
  7. IBUPROFEN [Concomitant]
  8. LEVOTHYROXINE [Concomitant]
  9. MAGNESIUM [Concomitant]
  10. SELENIUM [Concomitant]

REACTIONS (5)
  - Discomfort [None]
  - Dry skin [None]
  - Pain of skin [None]
  - Skin exfoliation [None]
  - Skin exfoliation [None]
